FAERS Safety Report 6037833-4 (Version None)
Quarter: 2009Q1

REPORT INFORMATION
  Report Type: 
  Country: None (occurrence: None)
  Receive Date: 20090114
  Receipt Date: 20090108
  Transmission Date: 20090719
  Serious: Yes (Hospitalization, Other)
  Sender: FDA-Public Use
  Company Number: US-RANBAXY-2009US-20294

PATIENT

DRUGS (5)
  1. ATENOLOL [Suspect]
     Indication: HEART RATE
     Dosage: 25 MG, BID
     Route: 048
     Dates: start: 20080101
  2. ATENOLOL [Suspect]
     Dosage: 25 MG, QOD WHEN REQUIRED
     Route: 048
     Dates: start: 20081201
  3. AMATRIPTYLINE [Concomitant]
     Indication: DRUG USE FOR UNKNOWN INDICATION
     Dosage: 50 MG, QD
     Route: 065
  4. ZANEX XR [Concomitant]
     Indication: DRUG USE FOR UNKNOWN INDICATION
     Dosage: UNK, QD
     Route: 065
  5. NEXIUM [Concomitant]
     Indication: DRUG USE FOR UNKNOWN INDICATION
     Route: 065

REACTIONS (4)
  - ABDOMINAL PAIN UPPER [None]
  - DIARRHOEA [None]
  - GASTROOESOPHAGEAL REFLUX DISEASE [None]
  - OROPHARYNGEAL PAIN [None]
